FAERS Safety Report 7718976-3 (Version None)
Quarter: 2011Q3

REPORT INFORMATION
  Report Type: 
  Country: None (occurrence: None)
  Receive Date: 20110830
  Receipt Date: 20110822
  Transmission Date: 20111222
  Serious: Yes (Other)
  Sender: FDA-Public Use
  Company Number: US-GLAXOSMITHKLINE-A0932061A

PATIENT
  Age: 55 Year
  Sex: Female

DRUGS (2)
  1. SUMATRIPTAN SUCCINATE [Suspect]
     Indication: MIGRAINE
     Dosage: 6MG UNKNOWN
     Route: 058
  2. GSK AUTOINJECTOR [Suspect]
     Indication: MIGRAINE
     Route: 042

REACTIONS (4)
  - ERYTHEMA [None]
  - BURNING SENSATION [None]
  - HAEMORRHAGE [None]
  - PRODUCT QUALITY ISSUE [None]
